FAERS Safety Report 7886272-X (Version None)
Quarter: 2011Q4

REPORT INFORMATION
  Report Type: 
  Country: None (occurrence: None)
  Receive Date: 20111102
  Receipt Date: 20110629
  Transmission Date: 20120403
  Serious: No
  Sender: FDA-Public Use
  Company Number: US-AMGEN-USASP2011034005

PATIENT
  Age: 39 Year
  Sex: Female

DRUGS (4)
  1. PLAQUENIL [Concomitant]
     Dosage: 2 PILLS, 1X/DAY
  2. METHOTREXATE SODIUM [Concomitant]
     Dosage: UNK, 10 PILLS WEEKLY
  3. ENBREL [Suspect]
     Indication: PRODUCT USED FOR UNKNOWN INDICATION
     Dosage: UNK
  4. FOLIC ACID [Concomitant]
     Dosage: UNK

REACTIONS (2)
  - WEIGHT DECREASED [None]
  - NAUSEA [None]
